FAERS Safety Report 5311637-X (Version None)
Quarter: 2007Q2

REPORT INFORMATION
  Report Type: 
  Country: None (occurrence: None)
  Receive Date: 20070430
  Receipt Date: 20060919
  Transmission Date: 20071010
  Serious: No
  Sender: FDA-Public Use
  Company Number: 2006UW15912

PATIENT
  Age: 2 Year
  Sex: Female
  Weight: 13.6 kg

DRUGS (3)
  1. ZOMIG [Suspect]
     Route: 048
     Dates: start: 20060809, end: 20060809
  2. ALBUTEROL [Concomitant]
  3. PULMICORT [Concomitant]

REACTIONS (2)
  - ABNORMAL BEHAVIOUR [None]
  - ACCIDENTAL EXPOSURE [None]
